FAERS Safety Report 9619459 (Version 1)
Quarter: 2013Q4

REPORT INFORMATION
  Report Type: Spontaneous
  Country: HU (occurrence: HU)
  Receive Date: 20131014
  Receipt Date: 20131014
  Transmission Date: 20140711
  Serious: Yes (Hospitalization)
  Sender: FDA-Public Use
  Company Number: HU-MYLANLABS-2013S1022018

PATIENT
  Age: 81 Year
  Sex: Female
  Weight: 54.3 kg

DRUGS (14)
  1. CLOPIDOGREL [Suspect]
     Indication: PROPHYLAXIS
     Route: 048
  2. MARFARIN [Interacting]
     Indication: ATRIAL FIBRILLATION
     Dates: start: 20130904, end: 20130913
  3. PRADAXA [Interacting]
     Indication: ATRIAL FIBRILLATION
     Route: 048
     Dates: start: 20130831, end: 20130913
  4. FUROSEMIDE [Concomitant]
     Indication: OEDEMA
     Dosage: MORNING AND MIDDAY
     Route: 048
  5. ADEXOR [Concomitant]
     Indication: ANGINA PECTORIS
     Dosage: TABLET
     Route: 048
  6. DIGIMERCK MINOR [Concomitant]
     Indication: ATRIAL FIBRILLATION
     Route: 048
  7. EUTHYROX [Concomitant]
     Indication: HYPOTHYROIDISM
     Dosage: TABLET
     Route: 048
  8. HUMULIN N [Concomitant]
     Indication: TYPE 2 DIABETES MELLITUS
     Dosage: SUBCUTANEOUS INJECTION - 100 IU/ML HUMAN INSULIN SOLUBLE
     Route: 058
     Dates: start: 201309
  9. HUMULIN R [Concomitant]
     Indication: TYPE 2 DIABETES MELLITUS
     Route: 058
     Dates: start: 201309
  10. KALIUM-R [Concomitant]
     Indication: HYPOKALAEMIA
     Dosage: TABLET
     Route: 048
  11. MILGAMMA /00089801/ [Concomitant]
     Indication: POLYNEUROPATHY
     Dosage: COATED TABLET DOSE UNIT:1 UNKNOWN
     Route: 048
  12. NEBILET [Concomitant]
     Indication: HYPERTENSION
     Dosage: TABLET
     Route: 048
  13. NITRODERM [Concomitant]
     Indication: CARDIAC FAILURE CONGESTIVE
     Dosage: 5 MG/HR DOSE UNIT:1 UNKNOWN
     Route: 062
  14. NORTIVAN HCT [Concomitant]
     Indication: HYPERTENSION
     Dosage: 160/12.5 MG FILM COATED TABLET DOSE UNIT:1 UNKNOWN
     Route: 048

REACTIONS (4)
  - Gastrointestinal haemorrhage [Recovered/Resolved]
  - Anaemia [Recovering/Resolving]
  - Drug prescribing error [Recovering/Resolving]
  - Labelled drug-drug interaction medication error [Recovering/Resolving]
